FAERS Safety Report 5265259-X (Version None)
Quarter: 2007Q1

REPORT INFORMATION
  Report Type: 
  Country: None (occurrence: None)
  Receive Date: 20061213
  Receipt Date: 20060224
  Transmission Date: 20070707
  Serious: Yes (Hospitalization)
  Sender: FDA-Public Use
  Company Number: 2006UW03247

PATIENT
  Sex: Female

DRUGS (2)
  1. TAMOXIFEN CITRATE [Suspect]
  2. ARIMIDEX [Suspect]

REACTIONS (4)
  - HOT FLUSH [None]
  - ILL-DEFINED DISORDER [None]
  - NIGHT SWEATS [None]
  - VAGINAL HAEMORRHAGE [None]
